FAERS Safety Report 20425179 (Version 1)
Quarter: 2022Q1

REPORT INFORMATION
  Report Type: Spontaneous
  Country: US (occurrence: US)
  Receive Date: 20220204
  Receipt Date: 20220204
  Transmission Date: 20220423
  Serious: No
  Sender: FDA-Public Use
  Company Number: US-EXELIXIS-CABO-21037088

PATIENT
  Sex: Female

DRUGS (1)
  1. CABOMETYX [Suspect]
     Active Substance: CABOZANTINIB S-MALATE
     Indication: Lymphoma
     Dosage: 20 MG, QD
     Route: 048
     Dates: start: 20201226

REACTIONS (3)
  - Dysphonia [Unknown]
  - Weight decreased [Unknown]
  - Off label use [Unknown]
